FAERS Safety Report 5505772-0 (Version None)
Quarter: 2007Q4

REPORT INFORMATION
  Report Type: 
  Country: None (occurrence: None)
  Receive Date: 20071102
  Receipt Date: 20071023
  Transmission Date: 20080405
  Serious: Yes (Hospitalization, Other)
  Sender: FDA-Public Use
  Company Number: US-PFIZER INC-2007089458

PATIENT
  Sex: Female
  Weight: 81.6 kg

DRUGS (14)
  1. LYRICA [Suspect]
     Indication: NEUROPATHY
  2. LYRICA [Suspect]
     Indication: SCIATICA
  3. CHANTIX [Interacting]
     Indication: SMOKING CESSATION THERAPY
  4. CORTICOSTEROIDS [Suspect]
     Indication: RESPIRATORY TRACT INFECTION
  5. LASIX [Interacting]
     Indication: OEDEMA PERIPHERAL
  6. CYMBALTA [Concomitant]
  7. ABILIFY [Concomitant]
  8. NEURONTIN [Concomitant]
  9. TOPROL-XL [Concomitant]
  10. REQUIP [Concomitant]
  11. METHADONE HCL [Concomitant]
  12. PERCOCET [Concomitant]
  13. AMBIEN [Concomitant]
  14. PREVACID [Concomitant]

REACTIONS (7)
  - DRUG INTERACTION [None]
  - GAIT DISTURBANCE [None]
  - LOWER RESPIRATORY TRACT INFECTION [None]
  - OEDEMA PERIPHERAL [None]
  - OXYGEN SATURATION DECREASED [None]
  - PAIN [None]
  - REBOUND EFFECT [None]
